FAERS Safety Report 7522977-8 (Version None)
Quarter: 2011Q2

REPORT INFORMATION
  Report Type: 
  Country: None (occurrence: None)
  Receive Date: 20110525
  Receipt Date: 20110512
  Transmission Date: 20111010
  Serious: Yes (Life-Threatening, Hospitalization, Disabling)
  Sender: FDA-Public Use
  Company Number: 20110412

PATIENT
  Age: 88 Year
  Sex: Male

DRUGS (4)
  1. GABAPENTIN [Concomitant]
  2. DEXAMETHASONE SODIUM PHOSPHATE [Suspect]
     Indication: ANTIINFLAMMATORY THERAPY
     Dosage: 4 MG/ML ONCE, INTRAVENOUS
     Route: 042
     Dates: start: 20110407, end: 20110407
  3. FORADIL [Concomitant]
  4. SEROQUEL [Concomitant]

REACTIONS (5)
  - FATIGUE [None]
  - PSYCHOTIC DISORDER [None]
  - CONFUSIONAL STATE [None]
  - OXYGEN SATURATION DECREASED [None]
  - APHASIA [None]
